FAERS Safety Report 8878948 (Version 1)
Quarter: 2012Q4

REPORT INFORMATION
  Report Type: 
  Country: US (occurrence: US)
  Receive Date: 20121026
  Receipt Date: 20121026
  Transmission Date: 20130627
  Serious: No
  Sender: FDA-Public Use
  Company Number: US-ASTRAZENECA-2011SE65933

PATIENT
  Sex: Male

DRUGS (3)
  1. CRESTOR [Suspect]
     Route: 048
  2. PLAVIX [Suspect]
     Route: 065
  3. UNKNOWN [Suspect]
     Route: 065

REACTIONS (1)
  - Fluid retention [Unknown]
